FAERS Safety Report 4819012-9 (Version None)
Quarter: 2005Q4

REPORT INFORMATION
  Report Type: 
  Country: None (occurrence: None)
  Receive Date: 20051101
  Receipt Date: 20051017
  Transmission Date: 20060501
  Serious: Yes (Other)
  Sender: FDA-Public Use
  Company Number: MAG-2005-0000402

PATIENT
  Age: 77 Year
  Sex: Female

DRUGS (23)
  1. OXYCODONE HCL CONTROLLED TABLETS (OXYCODONE HYDROCHLORIDE) CR TABLET [Suspect]
     Indication: CANCER PAIN
     Dosage: 10 MG, DAILY, ORAL; SEE IMAGE
     Route: 048
     Dates: start: 20040928, end: 20041001
  2. OXYCODONE HCL CONTROLLED TABLETS (OXYCODONE HYDROCHLORIDE) CR TABLET [Suspect]
     Indication: CANCER PAIN
     Dosage: 10 MG, DAILY, ORAL; SEE IMAGE
     Route: 048
     Dates: start: 20041002, end: 20050121
  3. OXYCODONE HCL CONTROLLED TABLETS (OXYCODONE HYDROCHLORIDE) CR TABLET [Suspect]
     Indication: CANCER PAIN
     Dosage: 10 MG, DAILY, ORAL; SEE IMAGE
     Route: 048
     Dates: start: 20050121, end: 20050513
  4. OXYCODONE HCL CONTROLLED TABLETS (OXYCODONE HYDROCHLORIDE) CR TABLET [Suspect]
     Indication: CANCER PAIN
     Dosage: 10 MG, DAILY, ORAL; SEE IMAGE
     Route: 048
     Dates: start: 20050514, end: 20050811
  5. OXYCODONE HCL CONTROLLED TABLETS (OXYCODONE HYDROCHLORIDE) CR TABLET [Suspect]
     Indication: CANCER PAIN
     Dosage: 10 MG, DAILY, ORAL; SEE IMAGE
     Route: 048
     Dates: start: 20050827, end: 20051012
  6. LOXONN (LOXOPROFEN SODIUM) [Concomitant]
  7. SELTOUCH (FELBINAC) [Concomitant]
  8. LENDORM [Concomitant]
  9. CONIEL (BENDIPINE HYDROCHLORIDE) [Concomitant]
  10. BLOPRESS (CANDESARTAN CILEXETIL) [Concomitant]
  11. NATRIX (INDAPAMIDE) [Concomitant]
  12. UFT E (TEGAFU URACIL) [Concomitant]
  13. MARZULENE (SODIUM GUALENATE) [Concomitant]
  14. AREDIA [Concomitant]
  15. IRESSA [Concomitant]
  16. MAGNESIUM OXIDE (MAGNESIUM OXIDE) [Concomitant]
  17. LASIX [Concomitant]
  18. METHYCOBAL (MECOBALAMIN) [Concomitant]
  19. DECADRON [Concomitant]
  20. CLONAZEPAM [Concomitant]
  21. ETODOLAC [Concomitant]
  22. RINDERON-VG (GENTAMICIN SULFATE, BETAMETHASONE VALERATE) [Concomitant]
  23. GLORIAMIN (AZULENE SODIUM SULFONATE, LEVOGLUTAMIDE) [Concomitant]

REACTIONS (3)
  - ALLERGIC RESPIRATORY SYMPTOM [None]
  - CONSTIPATION [None]
  - VOMITING [None]
